FAERS Safety Report 5800575-1 (Version None)
Quarter: 2008Q3

REPORT INFORMATION
  Report Type: 
  Country: None (occurrence: None)
  Receive Date: 20080703
  Receipt Date: 20080625
  Transmission Date: 20090109
  Serious: Yes (Other)
  Sender: FDA-Public Use
  Company Number: US-PFIZER INC-2008053663

PATIENT
  Sex: Female
  Weight: 80 kg

DRUGS (1)
  1. PROVERA [Suspect]
     Indication: CERVIX CARCINOMA

REACTIONS (2)
  - MYOCARDIAL INFARCTION [None]
  - RHEUMATOID ARTHRITIS [None]
